FAERS Safety Report 18619004 (Version 1)
Quarter: 2020Q4

REPORT INFORMATION
  Report Type: Spontaneous
  Country: JP (occurrence: JP)
  Receive Date: 20201215
  Receipt Date: 20201215
  Transmission Date: 20210114
  Serious: Yes (Death, Other)
  Sender: FDA-Public Use
  Company Number: JP-DSJP-DSJ-2020-137901

PATIENT
  Age: 51 Year
  Sex: Female

DRUGS (4)
  1. LIXIANA TABLETS [Suspect]
     Active Substance: EDOXABAN TOSYLATE
     Indication: PULMONARY THROMBOSIS
     Dosage: UNK
     Route: 048
  2. GRACEVIT [Suspect]
     Active Substance: SITAFLOXACIN
     Indication: PRODUCT USED FOR UNKNOWN INDICATION
     Dosage: 1 MG/DAY
     Route: 048
  3. FLOMOXEF SODIUM [Concomitant]
     Active Substance: FLOMOXEF SODIUM
     Dosage: 2 G/DAY
     Route: 042
  4. HEPARIN [Concomitant]
     Active Substance: HEPARIN SODIUM
     Indication: PULMONARY THROMBOSIS
     Dosage: 10000 UNIT/DAY
     Route: 041

REACTIONS (5)
  - Menorrhagia [Unknown]
  - Hepatic failure [Fatal]
  - Disseminated intravascular coagulation [Unknown]
  - Cholangitis acute [Unknown]
  - Hepatic enzyme increased [Unknown]
